FAERS Safety Report 9395926 (Version 1)
Quarter: 2013Q3

REPORT INFORMATION
  Report Type: Spontaneous
  Country: KR (occurrence: KR)
  Receive Date: 20130711
  Receipt Date: 20130711
  Transmission Date: 20140515
  Serious: Yes (Death)
  Sender: FDA-Public Use
  Company Number: KR-ACTELION-A-CH2013-85535

PATIENT
  Age: 72 Year
  Sex: Male

DRUGS (1)
  1. TRACLEER [Suspect]
     Indication: EISENMENGER^S SYNDROME
     Dosage: 125 MG, BID
     Route: 048

REACTIONS (1)
  - Myocardial infarction [Fatal]
